FAERS Safety Report 5919249-1 (Version None)
Quarter: 2008Q4

REPORT INFORMATION
  Report Type: 
  Country: None (occurrence: None)
  Receive Date: 20081015
  Receipt Date: 20081001
  Transmission Date: 20090506
  Serious: Yes (Other)
  Sender: FDA-Public Use
  Company Number: PHHY2008JP23509

PATIENT
  Sex: Male

DRUGS (2)
  1. ZADITEN [Suspect]
     Indication: RHINITIS ALLERGIC
  2. SODIUM CROMOGLICATE [Concomitant]

REACTIONS (2)
  - DIZZINESS [None]
  - MENIERE'S DISEASE [None]
